FAERS Safety Report 8172451-3 (Version None)
Quarter: 2012Q1

REPORT INFORMATION
  Report Type: 
  Country: None (occurrence: None)
  Receive Date: 20120227
  Receipt Date: 20120227
  Transmission Date: 20120608
  Serious: Yes (Hospitalization)
  Sender: FDA-Public Use
  Company Number: None

PATIENT
  Sex: Female
  Weight: 114.8 kg

DRUGS (2)
  1. TAXOL [Suspect]
     Dosage: 118 MG
     Dates: end: 20070302
  2. CARBOPLATIN [Suspect]
     Dosage: 628 MG
     Dates: end: 20070223

REACTIONS (7)
  - TRANSFUSION [None]
  - NEOPLASM RECURRENCE [None]
  - NEOPLASM PROGRESSION [None]
  - MYELODYSPLASTIC SYNDROME [None]
  - SUPPORTIVE CARE [None]
  - OVARIAN CANCER [None]
  - NEOPLASM MALIGNANT [None]
